FAERS Safety Report 6228047-3 (Version None)
Quarter: 2009Q2

REPORT INFORMATION
  Report Type: 
  Country: None (occurrence: None)
  Receive Date: 20090612
  Receipt Date: 20090603
  Transmission Date: 20091009
  Serious: Yes (Hospitalization)
  Sender: FDA-Public Use
  Company Number: FR-MERCK-0906FRA00005

PATIENT
  Age: 79 Year
  Sex: Male

DRUGS (6)
  1. PRIMAXIN [Suspect]
     Indication: PNEUMONIA ASPIRATION
     Route: 041
     Dates: start: 20090117, end: 20090119
  2. AMOXICILLIN AND CLAVULANATE POTASSIUM [Suspect]
     Indication: PNEUMONIA ASPIRATION
     Route: 042
     Dates: start: 20090111, end: 20090116
  3. VANCOMYCIN [Suspect]
     Indication: PNEUMONIA ASPIRATION
     Route: 042
     Dates: start: 20090118, end: 20090118
  4. CIPROFLOXACIN HYDROCHLORIDE [Suspect]
     Indication: PNEUMONIA ASPIRATION
     Route: 042
     Dates: start: 20090118, end: 20090118
  5. FONDAPARINUX SODIUM [Suspect]
     Indication: THROMBOSIS PROPHYLAXIS
     Route: 058
     Dates: start: 20090116, end: 20090119
  6. BENSERAZIDE HYDROCHLORIDE AND LEVODOPA [Concomitant]
     Indication: PARKINSON'S DISEASE
     Route: 048

REACTIONS (1)
  - DERMATITIS EXFOLIATIVE [None]
